FAERS Safety Report 24059245 (Version 3)
Quarter: 2024Q3

REPORT INFORMATION
  Report Type: Spontaneous
  Country: BR (occurrence: BR)
  Receive Date: 20240708
  Receipt Date: 20240910
  Transmission Date: 20241017
  Serious: Yes (Other)
  Sender: NOVARTIS
  Company Number: BR-002147023-NVSC2024BR140175

PATIENT
  Age: 1 Year

DRUGS (1)
  1. ZOLGENSMA [Suspect]
     Active Substance: ONASEMNOGENE ABEPARVOVEC-XIOI
     Indication: Spinal muscular atrophy
     Dosage: UNK, ONCE/SINGLE
     Route: 042
     Dates: start: 20240216, end: 20240216

REACTIONS (3)
  - Hypoglycaemia [Unknown]
  - Seizure [Unknown]
  - Transaminases increased [Unknown]

NARRATIVE: CASE EVENT DATE: 20240623
